FAERS Safety Report 25620800 (Version 2)
Quarter: 2025Q4

REPORT INFORMATION
  Report Type: Report from Study
  Country: US (occurrence: US)
  Receive Date: 20250730
  Receipt Date: 20251016
  Transmission Date: 20260118
  Serious: Yes (Other)
  Sender: ACADIA PHARMACEUTICALS
  Company Number: US-ACADIA PHARMACEUTICALS INC.-ACA-2025-PIM-008673

PATIENT
  Age: 69 Year
  Sex: Female

DRUGS (11)
  1. NUPLAZID [Suspect]
     Active Substance: PIMAVANSERIN TARTRATE
     Indication: Parkinson^s disease
     Dosage: 34 MILLIGRAM, QD
     Route: 048
     Dates: start: 20250701
  2. AMANTADINE [Concomitant]
     Active Substance: AMANTADINE
  3. AMITIZA [Concomitant]
     Active Substance: LUBIPROSTONE
  4. AMOXICILLIN [Concomitant]
     Active Substance: AMOXICILLIN
  5. BACTRIM DS [Concomitant]
     Active Substance: SULFAMETHOXAZOLE\TRIMETHOPRIM
     Dosage: 800-160
  6. CITALOPRAM [Concomitant]
     Active Substance: CITALOPRAM
  7. LINZESS [Concomitant]
     Active Substance: LINACLOTIDE
  8. MELOXICAM [Concomitant]
     Active Substance: MELOXICAM
  9. METOPROLOL SUCCINATE [Concomitant]
     Active Substance: METOPROLOL SUCCINATE
  10. STALEVO [Concomitant]
     Active Substance: CARBIDOPA\ENTACAPONE\LEVODOPA
     Dosage: 200
  11. VESICARE [Concomitant]
     Active Substance: SOLIFENACIN SUCCINATE

REACTIONS (4)
  - Delirium [Not Recovered/Not Resolved]
  - Dyspepsia [Unknown]
  - Dry mouth [Unknown]
  - Dizziness [Unknown]

NARRATIVE: CASE EVENT DATE: 20250901
